FAERS Safety Report 7414895-0 (Version None)
Quarter: 2011Q2

REPORT INFORMATION
  Report Type: 
  Country: None (occurrence: None)
  Receive Date: 20110414
  Receipt Date: 20101026
  Transmission Date: 20111010
  Serious: Yes (Hospitalization)
  Sender: FDA-Public Use
  Company Number: US-BAYER-201024713NA

PATIENT
  Age: 28 Year
  Sex: Female
  Weight: 111.11 kg

DRUGS (11)
  1. YASMIN [Suspect]
     Dosage: UNK
     Route: 048
     Dates: start: 20020812
  2. OCELLA [Suspect]
     Indication: PRODUCT USED FOR UNKNOWN INDICATION
     Route: 048
  3. YASMIN [Suspect]
     Dosage: UNK
     Dates: start: 20030204
  4. PLAN B [Concomitant]
     Dosage: UNK
     Dates: start: 20060901
  5. YAZ [Suspect]
     Indication: PRODUCT USED FOR UNKNOWN INDICATION
     Route: 048
  6. PREDNISONE [Concomitant]
     Indication: ASTHMA
     Dosage: UNK
     Dates: start: 20061101
  7. YASMIN [Suspect]
     Dosage: UNK
     Dates: start: 20030717
  8. CEPHALEXIN [Concomitant]
     Indication: ANTIBIOTIC THERAPY
  9. OXYCODONE HCL AND ACETAMINOPHEN [Concomitant]
     Indication: ASTHMA
     Dosage: UNK
     Dates: start: 20061101
  10. QVAR 40 [Concomitant]
     Indication: ASTHMA
     Dosage: UNK
     Dates: start: 20030101
  11. ALBUTEROL [Concomitant]
     Indication: ASTHMA
     Dosage: UNK
     Dates: start: 20030101

REACTIONS (5)
  - PULMONARY EMBOLISM [None]
  - HYPERSENSITIVITY [None]
  - CHOLELITHIASIS [None]
  - GALLBLADDER INJURY [None]
  - CHOLECYSTITIS CHRONIC [None]
